FAERS Safety Report 8459643-0 (Version None)
Quarter: 2012Q2

REPORT INFORMATION
  Report Type: 
  Country: None (occurrence: None)
  Receive Date: 20120622
  Receipt Date: 20120614
  Transmission Date: 20120825
  Serious: Yes (Hospitalization)
  Sender: FDA-Public Use
  Company Number: TW-GLAXOSMITHKLINE-B0808633A

PATIENT
  Age: 75 Year
  Sex: Male

DRUGS (2)
  1. AVANDIA [Suspect]
     Indication: DIABETES MELLITUS
     Dosage: 2MG TWICE PER DAY
     Route: 065
     Dates: start: 20080108, end: 20080121
  2. NORVASC [Concomitant]
     Indication: HYPERTENSION

REACTIONS (4)
  - OEDEMA PERIPHERAL [None]
  - NAUSEA [None]
  - DIZZINESS [None]
  - DYSPNOEA [None]
